FAERS Safety Report 24380027 (Version 2)
Quarter: 2024Q4

REPORT INFORMATION
  Report Type: Spontaneous
  Country: US (occurrence: US)
  Receive Date: 20240930
  Receipt Date: 20241017
  Transmission Date: 20250115
  Serious: No
  Sender: SUNOVION
  Company Number: US-SUMITOMO PHARMA SWITZERLAND GMBH-2024SPA002593

PATIENT
  Sex: Female

DRUGS (2)
  1. GEMTESA [Suspect]
     Active Substance: VIBEGRON
     Indication: Hypertonic bladder
     Dosage: 75 MG
     Route: 048
     Dates: end: 20240911
  2. TROSPIUM [Suspect]
     Active Substance: TROSPIUM
     Dosage: UNKNOWN
     Route: 065

REACTIONS (2)
  - Urinary tract infection [Unknown]
  - Therapy interrupted [Unknown]
